FAERS Safety Report 7761164-5 (Version None)
Quarter: 2011Q3

REPORT INFORMATION
  Report Type: 
  Country: None (occurrence: None)
  Receive Date: 20110920
  Receipt Date: 20110909
  Transmission Date: 20111222
  Serious: Yes (Other)
  Sender: FDA-Public Use
  Company Number: PT-GENZYME-FLUD-1001374

PATIENT
  Age: 76 Year
  Sex: Male

DRUGS (5)
  1. PREDNISOLONE [Concomitant]
     Indication: ANGIOIMMUNOBLASTIC T-CELL LYMPHOMA
     Dosage: 20 MG, QD
     Route: 048
  2. ACYCLOVIR [Concomitant]
     Indication: ANGIOIMMUNOBLASTIC T-CELL LYMPHOMA
     Dosage: 800 MG, QD
     Route: 048
  3. FLUDARA [Suspect]
     Indication: ANGIOIMMUNOBLASTIC T-CELL LYMPHOMA
     Dosage: 70 MG, DAILY IN 5-DAY CYCLES
     Route: 048
  4. COTRIM [Concomitant]
     Indication: ANGIOIMMUNOBLASTIC T-CELL LYMPHOMA
     Dosage: 800/160 MG ON M, W, F
     Route: 048
  5. WARFARIN SODIUM [Concomitant]
     Indication: ANGIOIMMUNOBLASTIC T-CELL LYMPHOMA
     Dosage: UNK
     Route: 065

REACTIONS (1)
  - TUBERCULOSIS [None]
